FAERS Safety Report 18340124 (Version 2)
Quarter: 2020Q4

REPORT INFORMATION
  Report Type: Spontaneous
  Country: CA (occurrence: CA)
  Receive Date: 20201002
  Receipt Date: 20201103
  Transmission Date: 20210113
  Serious: Yes (Hospitalization, Other)
  Sender: FDA-Public Use
  Company Number: CA-JNJFOC-20200948239

PATIENT
  Age: 22 Year
  Sex: Male
  Weight: 65 kg

DRUGS (6)
  1. INFLIXIMAB, RECOMBINANT [Suspect]
     Active Substance: INFLIXIMAB
     Indication: CROHN^S DISEASE
     Route: 042
  2. INFLIXIMAB, RECOMBINANT [Suspect]
     Active Substance: INFLIXIMAB
     Route: 042
  3. CALCIUM [Concomitant]
     Active Substance: CALCIUM
     Route: 048
  4. METHOTREXATE. [Concomitant]
     Active Substance: METHOTREXATE
     Route: 048
  5. ERGOCALCIFEROL. [Concomitant]
     Active Substance: ERGOCALCIFEROL
     Route: 048
  6. CORTIMENT                          /00028601/ [Concomitant]
     Active Substance: HYDROCORTISONE
     Route: 048

REACTIONS (14)
  - Arthralgia [Unknown]
  - Nausea [Unknown]
  - Weight decreased [Unknown]
  - Incorrect dose administered [Unknown]
  - Weight increased [Unknown]
  - Vomiting [Unknown]
  - Product use issue [Unknown]
  - Musculoskeletal pain [Unknown]
  - Intentional product use issue [Unknown]
  - Appendicitis [Unknown]
  - Body temperature decreased [Unknown]
  - Off label use [Unknown]
  - Abscess [Unknown]
  - Condition aggravated [Unknown]
